FAERS Safety Report 17718585 (Version 2)
Quarter: 2020Q2

REPORT INFORMATION
  Report Type: Spontaneous
  Country: BR (occurrence: BR)
  Receive Date: 20200428
  Receipt Date: 20200506
  Transmission Date: 20200714
  Serious: Yes (Other)
  Sender: FDA-Public Use
  Company Number: BR-SEATTLE GENETICS-2020SGN01949

PATIENT
  Sex: Male

DRUGS (4)
  1. DACARBAZIN [Suspect]
     Active Substance: DACARBAZINE
     Indication: HODGKIN^S DISEASE
     Dosage: UNK
     Route: 042
     Dates: start: 2019, end: 201912
  2. DOXORUBICINE                       /00330901/ [Suspect]
     Active Substance: DOXORUBICIN
     Indication: HODGKIN^S DISEASE
     Dosage: UNK
     Route: 042
     Dates: start: 2019, end: 201912
  3. VINBLASTIN [Suspect]
     Active Substance: VINBLASTINE
     Indication: HODGKIN^S DISEASE
     Dosage: UNK
     Route: 042
     Dates: start: 2019, end: 201912
  4. ADCETRIS [Suspect]
     Active Substance: BRENTUXIMAB VEDOTIN
     Indication: HODGKIN^S DISEASE
     Dosage: 1.8 MILLIGRAM/KILOGRAM
     Route: 042
     Dates: start: 2019, end: 201912

REACTIONS (3)
  - COVID-19 [Recovered/Resolved]
  - Weight increased [Recovered/Resolved]
  - Ill-defined disorder [Recovered/Resolved]

NARRATIVE: CASE EVENT DATE: 2019
